FAERS Safety Report 4484775-1 (Version None)
Quarter: 2004Q3

REPORT INFORMATION
  Report Type: 
  Country: None (occurrence: None)
  Receive Date: 20040921
  Receipt Date: 20031121
  Transmission Date: 20050211
  Serious: Yes (Hospitalization)
  Sender: FDA-Public Use
  Company Number: 163-20785-03110508(0)

PATIENT
  Age: 68 Year
  Sex: Male

DRUGS (4)
  1. THALOMID [Suspect]
     Indication: NON-SMALL CELL LUNG CANCER
     Dosage: 300 MG, QHS, ORAL; 200 MG, QHS, ORAL
     Route: 048
     Dates: start: 20031103, end: 20031109
  2. THALOMID [Suspect]
     Indication: NON-SMALL CELL LUNG CANCER
     Dosage: 300 MG, QHS, ORAL; 200 MG, QHS, ORAL
     Route: 048
     Dates: start: 20031110, end: 20031116
  3. CARBOPLATIN (CARBOPOLATIN) [Concomitant]
  4. IRINOTECAN HCL [Concomitant]

REACTIONS (3)
  - FACE OEDEMA [None]
  - RASH [None]
  - SWELLING FACE [None]
